FAERS Safety Report 8199662-5 (Version None)
Quarter: 2012Q1

REPORT INFORMATION
  Report Type: 
  Country: None (occurrence: None)
  Receive Date: 20120311
  Receipt Date: 20120229
  Transmission Date: 20120608
  Serious: Yes (Other)
  Sender: FDA-Public Use
  Company Number: US-ASTRAZENECA-2012SE14232

PATIENT
  Age: 32 Year
  Sex: Male

DRUGS (10)
  1. ENTOCORT EC [Suspect]
     Indication: CROHN'S DISEASE
     Route: 048
  2. VICODIN [Concomitant]
     Indication: MIGRAINE
     Dosage: 10/325 1/2 - 1 TAB AS NEEDED
  3. HUMIRA [Suspect]
     Indication: CROHN'S DISEASE
     Dosage: EVERY OTHER WEEK
     Route: 058
     Dates: start: 20080101
  4. VICODIN [Concomitant]
     Indication: ABDOMINAL PAIN
     Dosage: 10/325 1/2 - 1 TAB AS NEEDED
  5. FROVATRIPTAN SUCCINATE MONOHYDRATE [Concomitant]
     Indication: MIGRAINE
     Dosage: AS NEEDED
  6. PENICILLAMINE [Concomitant]
     Indication: HEPATO-LENTICULAR DEGENERATION
  7. RIZATRIPTAN [Concomitant]
     Indication: MIGRAINE
  8. HUMIRA [Suspect]
     Dosage: WEEKLY
     Route: 058
  9. CLONAZEPAM [Concomitant]
     Indication: ANXIETY
  10. ENTOCORT EC [Suspect]
     Route: 048
     Dates: start: 20111201

REACTIONS (6)
  - CHEST PAIN [None]
  - CROHN'S DISEASE [None]
  - PNEUMOTHORAX [None]
  - ABSCESS [None]
  - MIGRAINE [None]
  - DRUG INEFFECTIVE [None]
